FAERS Safety Report 23805317 (Version 3)
Quarter: 2024Q2

REPORT INFORMATION
  Report Type: Spontaneous
  Country: US (occurrence: US)
  Receive Date: 20240502
  Receipt Date: 20240604
  Transmission Date: 20240716
  Serious: Yes (Death, Hospitalization, Other)
  Sender: FDA-Public Use
  Company Number: US-009507513-2404USA012203

PATIENT
  Sex: Male
  Weight: 90 kg

DRUGS (1)
  1. KEYTRUDA [Suspect]
     Active Substance: PEMBROLIZUMAB
     Indication: Head and neck cancer
     Dosage: 200 MILLIGRAM, Q3W
     Dates: start: 20240212, end: 20240212

REACTIONS (12)
  - Malignant neoplasm progression [Fatal]
  - Respiratory distress [Fatal]
  - Pneumonia [Recovered/Resolved]
  - Immune-mediated lung disease [Recovered/Resolved]
  - Respiratory failure [Unknown]
  - Tracheobronchitis [Unknown]
  - Increased bronchial secretion [Unknown]
  - Tracheostomy [Unknown]
  - Lymphoedema [Unknown]
  - Discharge [Unknown]
  - Oxygen saturation decreased [Unknown]
  - Device dependence [Unknown]

NARRATIVE: CASE EVENT DATE: 20240101
